FAERS Safety Report 8625946-X (Version None)
Quarter: 2012Q3

REPORT INFORMATION
  Report Type: 
  Country: None (occurrence: None)
  Receive Date: 20120827
  Receipt Date: 20120822
  Transmission Date: 20120928
  Serious: Yes (Hospitalization)
  Sender: FDA-Public Use
  Company Number: US-ROCHE-1106863

PATIENT
  Sex: Male
  Weight: 93.978 kg

DRUGS (3)
  1. MABTHERA [Suspect]
     Indication: CHRONIC LYMPHOCYTIC LEUKAEMIA
     Route: 042
     Dates: start: 20110816, end: 20120103
  2. FLUDARABINE PHOSPHATE [Suspect]
     Indication: CHRONIC LYMPHOCYTIC LEUKAEMIA
     Dosage: DAY1, 2, 3 Q MONTH
     Route: 042
     Dates: start: 20110816, end: 20120105
  3. CYCLOPHOSPHAMIDE [Suspect]
     Indication: CHRONIC LYMPHOCYTIC LEUKAEMIA
     Dosage: DAY1, 2, 3 Q MONTH
     Route: 042
     Dates: start: 20110816, end: 20120105

REACTIONS (4)
  - RENAL FAILURE CHRONIC [None]
  - ANAEMIA [None]
  - INTUSSUSCEPTION [None]
  - CHRONIC OBSTRUCTIVE PULMONARY DISEASE [None]
